FAERS Safety Report 5314732-4 (Version None)
Quarter: 2007Q2

REPORT INFORMATION
  Report Type: 
  Country: None (occurrence: None)
  Receive Date: 20070427
  Receipt Date: 20070412
  Transmission Date: 20071010
  Serious: Yes (Hospitalization)
  Sender: FDA-Public Use
  Company Number: 2007PV000018

PATIENT
  Age: 54 Year
  Sex: Female

DRUGS (1)
  1. DEPOCYT [Suspect]
     Indication: ACUTE LYMPHOCYTIC LEUKAEMIA
     Dosage: 50 MG
     Dates: start: 20060310, end: 20070101

REACTIONS (3)
  - BLADDER DISTENSION [None]
  - CAUDA EQUINA SYNDROME [None]
  - DRUG TOXICITY [None]
